FAERS Safety Report 9858947 (Version 9)
Quarter: 2015Q3

REPORT INFORMATION
  Report Type: Spontaneous
  Country: IT (occurrence: IT)
  Receive Date: 20140131
  Receipt Date: 20150722
  Transmission Date: 20151125
  Serious: Yes (Death, Life-Threatening, Other)
  Sender: FDA-Public Use
  Company Number: IT-ELI_LILLY_AND_COMPANY-IT201401007477

PATIENT
  Age: 38 Year
  Sex: Male
  Weight: 112 kg

DRUGS (11)
  1. ZYPADHERA [Suspect]
     Active Substance: OLANZAPINE PAMOATE
     Dosage: 300 MG, UNKNOWN
     Route: 030
  2. DEPAKINE CHRONO [Concomitant]
     Active Substance: VALPROATE SODIUM
     Indication: MANIA
     Dosage: 1500 MG, QD (3X500 MG/DAY)
     Dates: start: 201103, end: 201302
  3. ZYPADHERA [Suspect]
     Active Substance: OLANZAPINE PAMOATE
     Indication: SCHIZOPHRENIA
     Dosage: 210 MG, EVERY TWO WEEKS
     Route: 030
     Dates: start: 201302
  4. HALDOL [Concomitant]
     Active Substance: HALOPERIDOL
     Indication: HALLUCINATION
     Dosage: 1.5 MG, QD (30 DROPS/DAY (10 DROPSX3))
     Dates: start: 201309, end: 201312
  5. NIFEDICOR [Suspect]
     Active Substance: NIFEDIPINE
     Indication: BLOOD PRESSURE INCREASED
     Dosage: 1 MG, UNKNOWN (20 DROPS)
     Route: 060
  6. ZYPADHERA [Suspect]
     Active Substance: OLANZAPINE PAMOATE
     Dosage: 405 MG, EVERY FOUR WEEKS
     Route: 030
  7. DEPAKINE CHRONO [Concomitant]
     Active Substance: VALPROATE SODIUM
     Indication: AGGRESSION
     Dosage: 1 G, QD (2X500 MG/DAY)
     Dates: start: 201302
  8. SOLIAN [Concomitant]
     Active Substance: AMISULPRIDE
     Indication: MENTAL DISORDER
     Dosage: 1200 MG, QD
     Dates: start: 201103, end: 201303
  9. SOLIAN [Concomitant]
     Active Substance: AMISULPRIDE
     Dosage: 400 MG, QD
     Dates: start: 201303
  10. HALDOL [Concomitant]
     Active Substance: HALOPERIDOL
     Indication: PSYCHOMOTOR HYPERACTIVITY
     Dosage: 1 MG (20 DROPS/EVENING), EACH EVENING
     Dates: start: 201312
  11. ALPRAZOLAM. [Concomitant]
     Active Substance: ALPRAZOLAM
     Dosage: UNK, PRN

REACTIONS (20)
  - Loss of consciousness [Not Recovered/Not Resolved]
  - Restlessness [Unknown]
  - Gait disturbance [Unknown]
  - Somnolence [Unknown]
  - Disorientation [Unknown]
  - Post-traumatic neck syndrome [Unknown]
  - Musculoskeletal stiffness [Unknown]
  - Cardiac arrest [Fatal]
  - Psychomotor hyperactivity [Unknown]
  - Seizure [Unknown]
  - Dyspnoea [Unknown]
  - Hypertension [Unknown]
  - Tonic clonic movements [Unknown]
  - Blood cholesterol increased [Unknown]
  - Respiratory depression [Not Recovered/Not Resolved]
  - Coma [Unknown]
  - Confusional state [Unknown]
  - Blood triglycerides increased [Unknown]
  - Hypervigilance [Unknown]
  - Tachycardia [Unknown]

NARRATIVE: CASE EVENT DATE: 201308
